FAERS Safety Report 12840425 (Version 3)
Quarter: 2016Q4

REPORT INFORMATION
  Report Type: Spontaneous
  Country: RE (occurrence: FR)
  Receive Date: 20161012
  Receipt Date: 20161220
  Transmission Date: 20170207
  Serious: Yes (Other)
  Sender: FDA-Public Use
  Company Number: RE-BRISTOL-MYERS SQUIBB COMPANY-BMS-2016-083841

PATIENT
  Age: 62 Year
  Sex: Male

DRUGS (3)
  1. VIRAMUNE [Suspect]
     Active Substance: NEVIRAPINE
     Indication: PRODUCT USED FOR UNKNOWN INDICATION
     Dosage: UNK
     Route: 065
  2. REYATAZ [Suspect]
     Active Substance: ATAZANAVIR SULFATE
     Indication: PRODUCT USED FOR UNKNOWN INDICATION
     Dosage: NOT AVAILABLE
     Route: 065
  3. NORVIR [Concomitant]
     Active Substance: RITONAVIR
     Indication: PRODUCT USED FOR UNKNOWN INDICATION
     Route: 065

REACTIONS (2)
  - Coronary artery disease [Unknown]
  - Coronary artery bypass [Unknown]

NARRATIVE: CASE EVENT DATE: 2016
